FAERS Safety Report 8155840-2 (Version None)
Quarter: 2012Q1

REPORT INFORMATION
  Report Type: 
  Country: None (occurrence: None)
  Receive Date: 20120215
  Receipt Date: 20120207
  Transmission Date: 20120608
  Serious: Yes (Hospitalization, Other)
  Sender: FDA-Public Use
  Company Number: ADR-2012-00321

PATIENT
  Age: 6 Year
  Sex: Female

DRUGS (1)
  1. BACLOFEN [Suspect]
     Dosage: SEE IMAGE

REACTIONS (5)
  - HYPERTONIA [None]
  - CONVULSION [None]
  - CONTUSION [None]
  - RALES [None]
  - BRONCHITIS [None]
